FAERS Safety Report 8810981 (Version 4)
Quarter: 2014Q1

REPORT INFORMATION
  Report Type: Spontaneous
  Country: US (occurrence: US)
  Receive Date: 20120927
  Receipt Date: 20140312
  Transmission Date: 20141002
  Serious: No
  Sender: FDA-Public Use
  Company Number: US-PFIZER INC-2012238005

PATIENT
  Age: 51 Year
  Sex: Female

DRUGS (38)
  1. LYRICA [Suspect]
     Indication: DIABETIC NEUROPATHY
     Dosage: 100 MG, 2X/DAY
  2. LYRICA [Suspect]
     Dosage: 150 MG, 2X/DAY
     Route: 048
     Dates: start: 200711
  3. ZOLOFT [Suspect]
     Indication: ANXIETY
     Dosage: 50 MG, 1X/DAY
     Dates: start: 201211
  4. PROTONIX [Suspect]
     Indication: GASTROOESOPHAGEAL REFLUX DISEASE
     Dosage: 40 MG, 1X/DAY
     Route: 048
     Dates: start: 200306
  5. NOVOLOG [Concomitant]
     Indication: DIABETES MELLITUS
     Dosage: 5-8 UNITS, MEALS
     Dates: start: 201101
  6. NOVOLOG [Concomitant]
     Dosage: UNK
  7. LANTUS [Concomitant]
     Indication: DIABETES MELLITUS
     Dosage: 25 IU, 1X/DAY
     Dates: start: 200601
  8. LANTUS [Concomitant]
     Dosage: 100 UNIT/ML 30 UNITS
     Route: 058
  9. BABY ASPIRIN [Concomitant]
     Indication: ABDOMINAL DISCOMFORT
     Dosage: 84 MG, 1X/DAY
     Dates: start: 200701
  10. PRAVASTATIN [Concomitant]
     Indication: BLOOD CHOLESTEROL INCREASED
     Dosage: 80 MG, 1X/DAY
     Dates: start: 200701
  11. LOSARTAN [Concomitant]
     Indication: HYPERTENSION
     Dosage: 50 MG, 1X/DAY
     Dates: start: 200707
  12. HYDROCHLOROTHIAZIDE [Concomitant]
     Indication: FLUID RETENTION
     Dosage: 12.5 MG, 1X/DAY
     Dates: start: 201107
  13. FLUTICASONE [Concomitant]
     Indication: HYPERSENSITIVITY
     Dosage: 50 UG, 1X/DAY
     Dates: start: 200708
  14. AMITRIPTYLINE [Concomitant]
     Indication: INTERVERTEBRAL DISC DEGENERATION
     Dosage: 25 MG, 1X/DAY
     Dates: start: 20080123
  15. AMITRIPTYLINE [Concomitant]
     Indication: CERVICAL MYELOPATHY
  16. AMITRIPTYLINE [Concomitant]
     Indication: SCIATIC NERVE NEUROPATHY
  17. TYLENOL [Concomitant]
     Indication: INTERVERTEBRAL DISC DEGENERATION
     Dosage: 50 MG, AS NEEDED
     Dates: start: 200807
  18. TYLENOL [Concomitant]
     Indication: CERVICAL MYELOPATHY
  19. TYLENOL [Concomitant]
     Indication: SCIATIC NERVE NEUROPATHY
  20. MOTRIN [Concomitant]
     Indication: INTERVERTEBRAL DISC DEGENERATION
     Dosage: 600 MG, AS NEEDED
     Dates: start: 20080123
  21. MOTRIN [Concomitant]
     Indication: CERVICAL MYELOPATHY
  22. MOTRIN [Concomitant]
     Indication: SCIATIC NERVE NEUROPATHY
  23. GENERAL NUTRIENTS/MINERALS/VITAMINS [Concomitant]
     Dosage: UNK
  24. OXYGEN [Concomitant]
     Indication: SLEEP APNOEA SYNDROME
     Dosage: UNK
     Dates: start: 200506
  25. ASPIRIN [Concomitant]
     Indication: ABDOMINAL DISCOMFORT
     Dosage: OVER 40MG
  26. ASPIRIN [Concomitant]
     Dosage: 81 MG, 1X/DAY
  27. VALIUM [Concomitant]
     Dosage: 2 MG 1 TABLET, AS NEEDED TWICE A DAY
     Route: 048
  28. XANAX [Concomitant]
     Dosage: 0.25 MG, 2X/DAY
     Route: 048
  29. FLUTICASONE PROPIONATE [Concomitant]
     Dosage: 0.05 MG/INH SPRAY, 2 SPRAY IN EACH NOSTRIL INTRA NASALLY ONCE A DAY
     Route: 045
  30. CLOTRIMAZOLE [Concomitant]
     Dosage: 1 % CREAM, 1 APPLICATION TO AFFECTED AREA EXTERNALLY TWICE A DAY
  31. VITAMIN D [Concomitant]
     Dosage: 1000 IU, 1X/DAY
     Route: 048
  32. AMITRIPTYLINE HYDROCHLORIDE [Concomitant]
     Dosage: 50 MG, 1X/DAY AT BEDTIME
     Route: 048
  33. LOSARTAN POTASSIUM [Concomitant]
     Dosage: 50 MG, 1X/DAY
     Route: 048
  34. DULCOLAX [Concomitant]
     Dosage: 10 MG, 1X/DAY
     Route: 054
  35. COLACE [Concomitant]
     Dosage: 100 MG, AS NEEDED TWICE A DAY
     Route: 048
  36. AMBIEN [Concomitant]
     Dosage: 5 MG, 1X/DAY AT BEDTIME
     Route: 048
  37. PHENTERMINE HYDROCHLORIDE [Concomitant]
     Dosage: 37.5 MG 1 TABLET, 1X/DAY
     Route: 048
  38. MULTIVITAMINS [Concomitant]
     Dosage: 1 DF, 1X/DAY
     Route: 048

REACTIONS (2)
  - Pain in extremity [Unknown]
  - Pain [Unknown]
